FAERS Safety Report 5501041-3 (Version None)
Quarter: 2007Q4

REPORT INFORMATION
  Report Type: 
  Country: None (occurrence: None)
  Receive Date: 20071029
  Receipt Date: 20071022
  Transmission Date: 20080405
  Serious: Yes (Other)
  Sender: FDA-Public Use
  Company Number: US-GENENTECH-249114

PATIENT
  Age: 23 Year
  Sex: Female

DRUGS (4)
  1. RITUXAN [Suspect]
     Indication: RHEUMATOID ARTHRITIS
     Dosage: 1000 MG, UNK
     Route: 042
     Dates: start: 20070625
  2. CELEBREX [Concomitant]
     Indication: DRUG USE FOR UNKNOWN INDICATION
  3. PROZAC [Concomitant]
     Indication: DRUG USE FOR UNKNOWN INDICATION
  4. SOLU-MEDROL [Concomitant]
     Indication: PREMEDICATION

REACTIONS (2)
  - LYMPHOEDEMA [None]
  - OEDEMA PERIPHERAL [None]
